FAERS Safety Report 5145084-0 (Version None)
Quarter: 2006Q4

REPORT INFORMATION
  Report Type: 
  Country: None (occurrence: None)
  Receive Date: 20061107
  Receipt Date: 20061025
  Transmission Date: 20070319
  Serious: Yes (Death)
  Sender: FDA-Public Use
  Company Number: JP-ELI_LILLY_AND_COMPANY-JP200610004995

PATIENT
  Age: 79 Year
  Sex: Female

DRUGS (11)
  1. OLANZAPINE [Suspect]
     Indication: SCHIZOPHRENIA, PARANOID TYPE
     Dosage: 5 MG, 2/D
     Route: 048
     Dates: start: 20060602, end: 20060609
  2. OLANZAPINE [Suspect]
     Dosage: 2.5 MG, 2/D
     Route: 048
     Dates: start: 20060610, end: 20060707
  3. OLANZAPINE [Suspect]
     Dosage: 5 MG, DAILY (1/D)
     Route: 048
     Dates: start: 20060602, end: 20060609
  4. OLANZAPINE [Suspect]
     Dosage: 5 MG, DAILY (1/D)
     Route: 048
     Dates: start: 20060620
  5. MAGLAX      /JPN/ [Concomitant]
     Indication: CONSTIPATION
     Dosage: 660 MG, DAILY (1/D)
     Route: 048
     Dates: start: 20060614, end: 20060620
  6. MAGLAX      /JPN/ [Concomitant]
     Dosage: 1320 MG, DAILY (1/D)
     Route: 048
     Dates: start: 20060617, end: 20060704
  7. MAGLAX      /JPN/ [Concomitant]
     Dosage: 1980 MG, DAILY (1/D)
     Route: 048
     Dates: start: 20060705
  8. NU-LOTAN /JPN/ [Concomitant]
     Indication: HYPERTENSION
     Dosage: 25 MG, DAILY (1/D)
     Route: 048
     Dates: start: 20060614, end: 20060616
  9. NU-LOTAN /JPN/ [Concomitant]
     Dosage: 50 MG, DAILY (1/D)
     Route: 048
     Dates: start: 20060617
  10. ARICEPT   /JPN/ [Concomitant]
     Indication: DEMENTIA
     Dosage: 3 MG, DAILY (1/D)
     Route: 048
     Dates: start: 20060704, end: 20060711
  11. ARICEPT   /JPN/ [Concomitant]
     Dosage: 5 MG, DAILY (1/D)
     Route: 048
     Dates: start: 20060712

REACTIONS (1)
  - CHOKING [None]
